FAERS Safety Report 10239613 (Version 6)
Quarter: 2015Q4

REPORT INFORMATION
  Report Type: Spontaneous
  Country: US (occurrence: US)
  Receive Date: 20140616
  Receipt Date: 20151104
  Transmission Date: 20160304
  Serious: Yes (Hospitalization, Other)
  Sender: FDA-Public Use
  Company Number: US-PFIZER INC-2014152225

PATIENT
  Age: 43 Year
  Sex: Male

DRUGS (2)
  1. ROBITUSSIN COUGH AND CHEST CONGESTION DM MAX [Suspect]
     Active Substance: DEXTROMETHORPHAN HYDROBROMIDE\GUAIFENESIN
     Dosage: 10 MG, 2X/DAY
     Dates: start: 20131113, end: 20131115
  2. ROBITUSSIN COUGH AND CHEST CONGESTION DM MAX [Suspect]
     Active Substance: DEXTROMETHORPHAN HYDROBROMIDE\GUAIFENESIN
     Indication: NASOPHARYNGITIS
     Dosage: ONLY ONE DAY
     Dates: start: 20131015, end: 20131015

REACTIONS (17)
  - Poor quality drug administered [Unknown]
  - Dyspnoea [Unknown]
  - Dysphagia [Unknown]
  - Drug ineffective [Unknown]
  - Incorrect product storage [Unknown]
  - Pharyngeal oedema [Unknown]
  - Cough [Not Recovered/Not Resolved]
  - Speech disorder [Unknown]
  - Lung perforation [Unknown]
  - Musculoskeletal pain [Unknown]
  - Bronchitis [Unknown]
  - Pleural effusion [Unknown]
  - Infection [Unknown]
  - Malaise [Not Recovered/Not Resolved]
  - Swollen tongue [Unknown]
  - Product physical issue [Unknown]
  - Cognitive disorder [Unknown]

NARRATIVE: CASE EVENT DATE: 20131113
